FAERS Safety Report 12582537 (Version 1)
Quarter: 2016Q3

REPORT INFORMATION
  Report Type: Spontaneous
  Country: US (occurrence: US)
  Receive Date: 20160722
  Receipt Date: 20160722
  Transmission Date: 20161109
  Serious: Yes (Other)
  Sender: FDA-Public Use
  Company Number: PHEH2016US017268

PATIENT
  Age: 56 Year
  Sex: Female

DRUGS (1)
  1. COSENTYX [Suspect]
     Active Substance: SECUKINUMAB
     Indication: ACNE
     Dosage: UNK
     Route: 058
     Dates: start: 20151219, end: 20160416

REACTIONS (5)
  - Product use issue [Unknown]
  - Diarrhoea [Unknown]
  - Pain [Unknown]
  - Colitis [Unknown]
  - Colitis microscopic [Unknown]

NARRATIVE: CASE EVENT DATE: 20160415
